FAERS Safety Report 13613656 (Version 2)
Quarter: 2018Q2

REPORT INFORMATION
  Report Type: Report from Study
  Country: None (occurrence: BR)
  Receive Date: 20170605
  Receipt Date: 20180514
  Transmission Date: 20180711
  Serious: Yes (Other)
  Sender: FDA-Public Use
  Company Number: BR-ABBVIE-17K-020-1996503-00

PATIENT
  Age: 54 Year
  Sex: Female
  Weight: 55 kg

DRUGS (3)
  1. HUMIRA [Suspect]
     Active Substance: ADALIMUMAB
     Indication: CROHN^S DISEASE
     Dosage: LOADING DOSE
     Route: 058
     Dates: start: 2016
  2. HUMIRA [Suspect]
     Active Substance: ADALIMUMAB
     Dosage: DOSE INCREASED
     Route: 058
  3. HUMIRA [Suspect]
     Active Substance: ADALIMUMAB
     Route: 058

REACTIONS (12)
  - Endoscopy abnormal [Unknown]
  - Nausea [Recovering/Resolving]
  - Crohn^s disease [Recovering/Resolving]
  - Arthralgia [Unknown]
  - Pain [Recovering/Resolving]
  - Loss of personal independence in daily activities [Unknown]
  - Hypophagia [Recovering/Resolving]
  - Pain [Unknown]
  - Blood test abnormal [Unknown]
  - Blood count abnormal [Unknown]
  - Infection [Recovering/Resolving]
  - Vomiting [Recovering/Resolving]

NARRATIVE: CASE EVENT DATE: 201802
